FAERS Safety Report 7961549-8 (Version None)
Quarter: 2011Q4

REPORT INFORMATION
  Report Type: 
  Country: None (occurrence: None)
  Receive Date: 20111207
  Receipt Date: 20111123
  Transmission Date: 20120403
  Serious: Yes (Hospitalization, Other)
  Sender: FDA-Public Use
  Company Number: US-SANOFI-AVENTIS-2011SA077873

PATIENT
  Age: 71 Year
  Sex: Female
  Weight: 60 kg

DRUGS (3)
  1. PLAVIX [Suspect]
     Route: 048
     Dates: start: 20111029
  2. PLAVIX [Suspect]
     Indication: STENT PLACEMENT
     Route: 048
     Dates: start: 20111003, end: 20111028
  3. ASPIRIN [Concomitant]

REACTIONS (6)
  - RECTAL HAEMORRHAGE [None]
  - EPISTAXIS [None]
  - MOUTH HAEMORRHAGE [None]
  - GASTRITIS [None]
  - ANAEMIA [None]
  - DIVERTICULITIS [None]
